FAERS Safety Report 7499362-0 (Version None)
Quarter: 2011Q2

REPORT INFORMATION
  Report Type: 
  Country: None (occurrence: None)
  Receive Date: 20110524
  Receipt Date: 20110516
  Transmission Date: 20111010
  Serious: Yes (Life-Threatening, Hospitalization)
  Sender: FDA-Public Use
  Company Number: FR-SANOFI-AVENTIS-2011SA031420

PATIENT
  Age: 79 Year
  Sex: Male

DRUGS (6)
  1. INSULATARD [Concomitant]
  2. LASIX [Suspect]
     Route: 048
     Dates: end: 20110422
  3. IRBESARTAN [Suspect]
     Route: 048
  4. BISOPROLOL FUMARATE [Concomitant]
  5. ALLOPURINOL [Suspect]
     Route: 048
     Dates: end: 20110422
  6. CORDARONE [Concomitant]

REACTIONS (1)
  - DRUG RASH WITH EOSINOPHILIA AND SYSTEMIC SYMPTOMS [None]
